FAERS Safety Report 9226167 (Version 1)
Quarter: 2013Q2

REPORT INFORMATION
  Report Type: Spontaneous
  Country: US (occurrence: US)
  Receive Date: 20130411
  Receipt Date: 20130411
  Transmission Date: 20140414
  Serious: No
  Sender: FDA-Public Use
  Company Number: US-009507513-1302USA004527

PATIENT
  Sex: Male

DRUGS (1)
  1. PEG-INTRON [Suspect]
     Indication: HEPATITIS C
     Dosage: UNK
     Dates: start: 20030101

REACTIONS (5)
  - Arthralgia [Unknown]
  - Influenza like illness [Unknown]
  - Depression [Unknown]
  - Drug ineffective [Unknown]
  - Therapeutic response decreased [Unknown]
